FAERS Safety Report 6835645-2 (Version None)
Quarter: 2010Q3

REPORT INFORMATION
  Report Type: 
  Country: None (occurrence: None)
  Receive Date: 20100713
  Receipt Date: 20100706
  Transmission Date: 20110219
  Serious: Yes (Life-Threatening, Hospitalization)
  Sender: FDA-Public Use
  Company Number: JP-JNJFOC-20100406341

PATIENT
  Sex: Male
  Weight: 114 kg

DRUGS (15)
  1. RISPERDAL CONSTA [Suspect]
     Indication: SCHIZOPHRENIA
     Route: 030
  2. RISPERDAL CONSTA [Suspect]
     Route: 030
  3. CONTOMIN [Suspect]
     Indication: SCHIZOPHRENIA
     Route: 048
  4. CONTOMIN [Suspect]
     Route: 048
  5. CONTOMIN [Suspect]
     Route: 048
  6. CONTOMIN [Suspect]
     Route: 048
  7. RISPERIDONE [Concomitant]
     Indication: SCHIZOPHRENIA
     Route: 048
  8. CHLORPROMAZINE+PROMETHAZINE COMBINED [Concomitant]
     Route: 048
  9. MEILAX [Concomitant]
     Indication: SCHIZOPHRENIA
     Route: 048
  10. AMOBAN [Concomitant]
     Indication: INSOMNIA
     Route: 048
  11. AKINETON [Concomitant]
     Indication: PROPHYLAXIS
     Route: 048
  12. LEXOTAN [Concomitant]
     Indication: SCHIZOPHRENIA
     Route: 048
  13. LEVOMEPROMAZINE MALEATE [Concomitant]
     Route: 048
  14. BENZALIN [Concomitant]
     Indication: INSOMNIA
     Route: 048
  15. GLYCYRRHIZA [Concomitant]
     Route: 048

REACTIONS (4)
  - DIABETIC COMA [None]
  - DIABETIC KETOACIDOSIS [None]
  - INSOMNIA [None]
  - IRRITABILITY [None]
